FAERS Safety Report 5237846-6 (Version None)
Quarter: 2007Q1

REPORT INFORMATION
  Report Type: 
  Country: None (occurrence: None)
  Receive Date: 20070214
  Receipt Date: 20070201
  Transmission Date: 20070707
  Serious: Yes (Hospitalization)
  Sender: FDA-Public Use
  Company Number: US-KINGPHARMUSA00001-K200700119

PATIENT

DRUGS (11)
  1. ALTACE [Suspect]
     Dosage: 10 MG, QD
     Route: 048
     Dates: start: 20040501, end: 20061004
  2. ALTACE [Suspect]
     Dosage: 10 MG, QD
     Route: 048
     Dates: start: 20061001, end: 20061031
  3. ALTACE [Suspect]
     Dosage: 2.5 MG, QD
     Dates: start: 20061121
  4. PREVISCAN /00789001/ [Suspect]
     Dosage: 15 MG, UNK
     Route: 048
     Dates: start: 20040501, end: 20061004
  5. PREVISCAN /00789001/ [Suspect]
     Dates: start: 20061001
  6. CORDARONE /00133102/ [Concomitant]
     Dosage: 200 MG, UNK
     Route: 048
     Dates: start: 20040501
  7. LASILIX /00032601/ [Concomitant]
     Dosage: 40 MG, UNK
     Route: 048
     Dates: start: 20040501
  8. LASILIX  /00032601/ [Concomitant]
     Dosage: 20 MG, UNK
     Dates: start: 20061121
  9. CARDENSIEL [Concomitant]
     Dosage: 10 MG, UNK
     Route: 048
     Dates: start: 20050501, end: 20061004
  10. IMOVANE [Concomitant]
     Dosage: 37.5 MG, UNK
     Dates: end: 20061004
  11. TEMESTA  /00273201/ [Concomitant]
     Dosage: 1 MG, UNK
     Route: 048
     Dates: start: 20040501, end: 20061004

REACTIONS (15)
  - ACTIVATED PARTIAL THROMBOPLASTIN TIME PROLONGED [None]
  - ANAEMIA [None]
  - ANOREXIA [None]
  - BLOOD CREATININE INCREASED [None]
  - BLOOD FIBRINOGEN INCREASED [None]
  - COLITIS COLLAGENOUS [None]
  - DIARRHOEA [None]
  - GASTROENTERITIS [None]
  - GENERAL PHYSICAL HEALTH DETERIORATION [None]
  - INTERNATIONAL NORMALISED RATIO INCREASED [None]
  - MELAENA [None]
  - OEDEMA PERIPHERAL [None]
  - OVERDOSE [None]
  - RENAL FAILURE ACUTE [None]
  - WEIGHT DECREASED [None]
